FAERS Safety Report 9036905 (Version 2)
Quarter: 2013Q1

REPORT INFORMATION
  Report Type: Spontaneous
  Country: FR (occurrence: None)
  Receive Date: 20121205
  Receipt Date: 20130128
  Transmission Date: 20140127
  Serious: Yes (Hospitalization)
  Sender: FDA-Public Use
  Company Number: GAM-270-12-FR

PATIENT
  Age: 65 Year
  Sex: Male

DRUGS (1)
  1. OCTAGAM [Suspect]
     Indication: IMMUNOSUPPRESSION
     Dosage: 26 G (1X  1/D)  INTRAVENOUS (NOT OTHERWISE SPECIFIED)
     Route: 042
     Dates: start: 20121025, end: 20121025

REACTIONS (5)
  - Hypersensitivity [None]
  - Convulsion [None]
  - Tinnitus [None]
  - Loss of consciousness [None]
  - Blood pressure systolic increased [None]
